FAERS Safety Report 17451203 (Version 1)
Quarter: 2020Q1

REPORT INFORMATION
  Report Type: Spontaneous
  Country: CN (occurrence: CN)
  Receive Date: 20200224
  Receipt Date: 20200224
  Transmission Date: 20200409
  Serious: Yes (Hospitalization)
  Sender: FDA-Public Use
  Company Number: CN-PFIZER INC-2020076289

PATIENT
  Age: 56 Year
  Sex: Male

DRUGS (2)
  1. METHYLPREDNISOLONE SODIUM SUCCINATE. [Suspect]
     Active Substance: METHYLPREDNISOLONE SODIUM SUCCINATE
     Indication: VASCULITIS
     Dosage: 40 MG, 1X/DAY
     Route: 041
     Dates: start: 20200122, end: 20200202
  2. SODIUM CHLORIDE 0.9% [Concomitant]
     Active Substance: SODIUM CHLORIDE
     Indication: VEHICLE SOLUTION USE
     Dosage: 100 ML, 1X/DAY
     Route: 041
     Dates: start: 20200122, end: 20200202

REACTIONS (5)
  - Incision site ulcer [Not Recovered/Not Resolved]
  - Product use in unapproved indication [Unknown]
  - Incision site impaired healing [Not Recovered/Not Resolved]
  - Off label use [Unknown]
  - Incision site discharge [Not Recovered/Not Resolved]

NARRATIVE: CASE EVENT DATE: 20200122
